FAERS Safety Report 19975976 (Version 2)
Quarter: 2022Q1

REPORT INFORMATION
  Report Type: Report from Study
  Country: US (occurrence: US)
  Receive Date: 20211021
  Receipt Date: 20220110
  Transmission Date: 20220423
  Serious: No
  Sender: FDA-Public Use
  Company Number: US-NOVARTISTESTPH-NVSC2021US239780

PATIENT
  Sex: Female

DRUGS (1)
  1. COSENTYX [Suspect]
     Active Substance: SECUKINUMAB
     Indication: Psoriasis
     Dosage: 150 MG, QW (EVERY WEEK X 5 WEEKS THEN EVERY 4 WEEKS)
     Route: 058
     Dates: start: 20211001

REACTIONS (7)
  - Psoriasis [Unknown]
  - Pain in extremity [Unknown]
  - Abdominal pain upper [Unknown]
  - Groin pain [Unknown]
  - Fatigue [Unknown]
  - Fall [Unknown]
  - Pruritus [Unknown]
